FAERS Safety Report 6151734-2 (Version None)
Quarter: 2009Q2

REPORT INFORMATION
  Report Type: 
  Country: None (occurrence: None)
  Receive Date: 20090410
  Receipt Date: 20090402
  Transmission Date: 20091009
  Serious: Yes (Other)
  Sender: FDA-Public Use
  Company Number: A0776610A

PATIENT
  Sex: Female

DRUGS (1)
  1. ARIXTRA [Suspect]

REACTIONS (3)
  - ADVERSE EVENT [None]
  - CAESAREAN SECTION [None]
  - DRUG EXPOSURE DURING PREGNANCY [None]
